FAERS Safety Report 9885040 (Version 2)
Quarter: 2014Q1

REPORT INFORMATION
  Report Type: Report from Study
  Country: US (occurrence: US)
  Receive Date: 20140210
  Receipt Date: 20140210
  Transmission Date: 20141002
  Serious: Yes (Other)
  Sender: FDA-Public Use
  Company Number: US-MYLANLABS-2014S1002125

PATIENT
  Age: 13 Year
  Sex: Female

DRUGS (3)
  1. AMNESTEEM CAPSULES [Suspect]
     Indication: ACNE
     Dates: start: 20140103, end: 20140120
  2. APRI [Concomitant]
     Indication: CONTRACEPTION
  3. SERTRALINE [Concomitant]

REACTIONS (2)
  - Rectal haemorrhage [Recovering/Resolving]
  - Rectal fissure [Not Recovered/Not Resolved]
